FAERS Safety Report 21858192 (Version 1)
Quarter: 2023Q1

REPORT INFORMATION
  Report Type: Spontaneous
  Country: US (occurrence: US)
  Receive Date: 20230113
  Receipt Date: 20230113
  Transmission Date: 20230417
  Serious: Yes (Hospitalization)
  Sender: FDA-Public Use
  Company Number: US-CTI BIOPHARMA-2022US03221

PATIENT

DRUGS (2)
  1. VONJO [Suspect]
     Active Substance: PACRITINIB
     Indication: Myelofibrosis
     Dosage: 200 MG, BID
     Route: 048
     Dates: start: 20220722
  2. METOPROLOL [Concomitant]
     Active Substance: METOPROLOL

REACTIONS (9)
  - Staphylococcal infection [Unknown]
  - Illness [Unknown]
  - Bedridden [Unknown]
  - Heart sounds [Unknown]
  - Pruritus [Recovering/Resolving]
  - Full blood count abnormal [Unknown]
  - Platelet disorder [Unknown]
  - Dyspnoea [Unknown]
  - Anaemia [Unknown]
